FAERS Safety Report 19578981 (Version 1)
Quarter: 2021Q3

REPORT INFORMATION
  Report Type: Report from Study
  Country: JP (occurrence: JP)
  Receive Date: 20210720
  Receipt Date: 20210720
  Transmission Date: 20211014
  Serious: Yes (Hospitalization)
  Sender: FDA-Public Use
  Company Number: JP-CELLTRION INC.-2020JP021703

PATIENT

DRUGS (9)
  1. CT?P13 [Suspect]
     Active Substance: INFLIXIMAB-DYYB
     Indication: COLITIS ULCERATIVE
     Dosage: 415 MILLIGRAM (WT: 83 KG)
     Route: 041
     Dates: start: 20181126, end: 20181126
  2. CT?P13 [Suspect]
     Active Substance: INFLIXIMAB-DYYB
     Dosage: 425 MILLIGRAM (WT: 85 KG)
     Route: 041
     Dates: start: 20190318, end: 20190318
  3. CT?P13 [Suspect]
     Active Substance: INFLIXIMAB-DYYB
     Dosage: 425 MILLIGRAM (WT: 85 KG)
     Route: 041
     Dates: start: 20190513, end: 20190513
  4. CT?P13 [Suspect]
     Active Substance: INFLIXIMAB-DYYB
     Dosage: 425 MILLIGRAM (WT: 85 KG)
     Route: 041
     Dates: start: 20201130, end: 20201130
  5. CT?P13 [Suspect]
     Active Substance: INFLIXIMAB-DYYB
     Dosage: 420 MILLIGRAM (WT: 84 KG)
     Route: 041
     Dates: start: 20190121, end: 20190121
  6. CT?P13 [Suspect]
     Active Substance: INFLIXIMAB-DYYB
     Dosage: 435 MILLIGRAM (WT: 87.3 KG)
     Route: 041
     Dates: start: 20191028, end: 20191028
  7. MESALAZINE [Concomitant]
     Active Substance: MESALAMINE
     Dosage: 4000 MILLIGRAM/DAY
     Route: 048
     Dates: start: 20170710
  8. AZATHIOPRINE. [Concomitant]
     Active Substance: AZATHIOPRINE
     Dosage: 50 MILLIGRAM/DAY
     Route: 048
     Dates: start: 20170626
  9. SALAZOSULFAPYRIDINE [Concomitant]
     Active Substance: SULFASALAZINE
     Dosage: 3000 MILLIGRAM/DAY
     Route: 048
     Dates: start: 20170724

REACTIONS (7)
  - Off label use [Unknown]
  - Hypertension [Not Recovered/Not Resolved]
  - Chronic gastritis [Not Recovered/Not Resolved]
  - Hepatic steatosis [Unknown]
  - Underdose [Unknown]
  - Hip arthroplasty [Recovered/Resolved]
  - Hyperlipidaemia [Not Recovered/Not Resolved]

NARRATIVE: CASE EVENT DATE: 20190318
